FAERS Safety Report 4916746-2 (Version None)
Quarter: 2006Q1

REPORT INFORMATION
  Report Type: 
  Country: None (occurrence: None)
  Receive Date: 20060214
  Receipt Date: 20060203
  Transmission Date: 20060701
  Serious: Yes (Hospitalization)
  Sender: FDA-Public Use
  Company Number: 2006017777

PATIENT
  Age: 25 Year
  Sex: Female
  Weight: 54 kg

DRUGS (1)
  1. ELETRIPTAN [Suspect]
     Indication: MIGRAINE
     Dosage: 40 MG (40 MG, 1 IN 1 AS NECESSARY), ORAL
     Route: 048
     Dates: start: 20051011, end: 20051011

REACTIONS (4)
  - FACE OEDEMA [None]
  - LARYNGEAL OEDEMA [None]
  - RESPIRATORY DISORDER [None]
  - VOMITING [None]
